FAERS Safety Report 4569306-X (Version None)
Quarter: 2005Q1

REPORT INFORMATION
  Report Type: 
  Country: None (occurrence: None)
  Receive Date: 20050118
  Receipt Date: 20040915
  Transmission Date: 20050727
  Serious: Yes (Other)
  Sender: FDA-Public Use
  Company Number: HQWYE113117SEP04

PATIENT
  Age: 63 Year
  Sex: Female
  Weight: 53.57 kg

DRUGS (2)
  1. PREMPRO [Suspect]
     Dosage: ORAL
     Route: 048
     Dates: start: 20020101
  2. SYNTHROID [Concomitant]

REACTIONS (1)
  - PARAESTHESIA [None]
